FAERS Safety Report 23964038 (Version 1)
Quarter: 2024Q2

REPORT INFORMATION
  Report Type: Spontaneous
  Country: PL (occurrence: PL)
  Receive Date: 20240611
  Receipt Date: 20240611
  Transmission Date: 20240716
  Serious: Yes (Hospitalization, Other)
  Sender: FDA-Public Use
  Company Number: PL-NOVOPROD-1232244

PATIENT
  Age: 22 Year
  Sex: Female

DRUGS (1)
  1. OZEMPIC [Suspect]
     Active Substance: SEMAGLUTIDE
     Indication: Weight control
     Dosage: UNK
     Route: 058

REACTIONS (6)
  - Duodenitis [Unknown]
  - Pancreatitis acute [Recovering/Resolving]
  - Gastritis [Unknown]
  - Weight decreased [Unknown]
  - Diplopia [Unknown]
  - Off label use [Unknown]
